FAERS Safety Report 24907697 (Version 1)
Quarter: 2025Q1

REPORT INFORMATION
  Report Type: Other
  Country: JP (occurrence: JP)
  Receive Date: 20250131
  Receipt Date: 20250131
  Transmission Date: 20250408
  Serious: Yes (Hospitalization)
  Sender: ARGENX BVBA
  Company Number: None

PATIENT

DRUGS (3)
  1. EFGARTIGIMOD ALFA [Suspect]
     Active Substance: EFGARTIGIMOD ALFA
     Indication: Product used for unknown indication
     Route: 065
  2. RAVULIZUMAB [Concomitant]
     Active Substance: RAVULIZUMAB
     Indication: Myasthenia gravis
     Route: 042
  3. RAVULIZUMAB [Concomitant]
     Active Substance: RAVULIZUMAB
     Route: 042

REACTIONS (1)
  - Pyrexia [Unknown]
